FAERS Safety Report 11782991 (Version 2)
Quarter: 2015Q4

REPORT INFORMATION
  Report Type: Spontaneous
  Country: US (occurrence: US)
  Receive Date: 20151127
  Receipt Date: 20151130
  Transmission Date: 20160305
  Serious: No
  Sender: FDA-Public Use
  Company Number: US-SA-2015SA002761

PATIENT

DRUGS (1)
  1. RENAGEL [Suspect]
     Active Substance: SEVELAMER HYDROCHLORIDE
     Dosage: 800MG / 6 WITH MEALS, 5 WITH SNACKS
     Route: 065

REACTIONS (2)
  - Overdose [Unknown]
  - Constipation [Not Recovered/Not Resolved]
